FAERS Safety Report 4432073-4 (Version None)
Quarter: 2004Q3

REPORT INFORMATION
  Report Type: 
  Country: None (occurrence: None)
  Receive Date: 20040818
  Receipt Date: 20040802
  Transmission Date: 20050211
  Serious: Yes (Hospitalization)
  Sender: FDA-Public Use
  Company Number: 187244

PATIENT
  Age: 57 Year
  Sex: Female
  Weight: 55.3388 kg

DRUGS (14)
  1. AVONEX [Suspect]
     Indication: MULTIPLE SCLEROSIS
     Dosage: 30 MCG QW IM
     Route: 030
     Dates: start: 19980101, end: 20031113
  2. AVONEX [Suspect]
     Indication: MULTIPLE SCLEROSIS
     Dosage: 30 MCG QW IM
     Route: 030
     Dates: start: 20031120
  3. LEVOTHYROXINE SODIUM [Concomitant]
  4. ACTONEL [Concomitant]
  5. FOSAMAX [Concomitant]
  6. CALCIUM [Concomitant]
  7. ESTRACE ^ROBERTS^ [Concomitant]
  8. DIFLUNISAL [Concomitant]
  9. ZANTAC [Concomitant]
  10. CLONIDINE HCL [Concomitant]
  11. ALFENTANIL [Concomitant]
  12. PROMETRIUM [Concomitant]
  13. PREDNISONE [Concomitant]
  14. DYAZIDE [Concomitant]

REACTIONS (9)
  - ARTHRITIS [None]
  - BACK PAIN [None]
  - BLOOD CREATININE INCREASED [None]
  - DEHYDRATION [None]
  - ESSENTIAL HYPERTENSION [None]
  - INTERVERTEBRAL DISC DISORDER [None]
  - RENAL DISORDER [None]
  - RENAL IMPAIRMENT [None]
  - SPINAL COMPRESSION FRACTURE [None]
